FAERS Safety Report 8083852-6 (Version None)
Quarter: 2012Q1

REPORT INFORMATION
  Report Type: 
  Country: None (occurrence: None)
  Receive Date: 20120128
  Receipt Date: 20110204
  Transmission Date: 20120608
  Serious: Yes (Hospitalization)
  Sender: FDA-Public Use
  Company Number: US-ABBOTT-11P-163-0703003-00

PATIENT
  Sex: Female
  Weight: 80.812 kg

DRUGS (2)
  1. HUMIRA [Suspect]
     Indication: RHEUMATOID ARTHRITIS
     Dates: start: 20070101, end: 20090101
  2. HUMIRA [Suspect]
     Dates: start: 20090101, end: 20100101

REACTIONS (6)
  - PNEUMONIA [None]
  - TOOTH INFECTION [None]
  - STAPHYLOCOCCAL INFECTION [None]
  - CELLULITIS [None]
  - THROMBOSIS [None]
  - INFECTED BITES [None]
